FAERS Safety Report 18947799 (Version 1)
Quarter: 2021Q1

REPORT INFORMATION
  Report Type: Spontaneous
  Country: JP (occurrence: JP)
  Receive Date: 20210227
  Receipt Date: 20210227
  Transmission Date: 20210420
  Serious: Yes (Other)
  Sender: FDA-Public Use
  Company Number: JP-SA-2021SA064040

PATIENT
  Age: 53 Year
  Sex: Female

DRUGS (2)
  1. ELPLAT [Suspect]
     Active Substance: OXALIPLATIN
     Dosage: UNK
     Route: 042
     Dates: start: 20200512, end: 20201109
  2. XELOX [Concomitant]
     Active Substance: CAPECITABINE\OXALIPLATIN
     Dosage: UNK UNK, Q3W

REACTIONS (1)
  - Bone marrow failure [Recovered/Resolved]
